FAERS Safety Report 15093874 (Version 10)
Quarter: 2020Q1

REPORT INFORMATION
  Report Type: Spontaneous
  Country: US (occurrence: US)
  Receive Date: 20180629
  Receipt Date: 20200323
  Transmission Date: 20200409
  Serious: Yes (Death, Other)
  Sender: FDA-Public Use
  Company Number: US-ACTELION-A-NJ2018-174582

PATIENT
  Age: 67 Year
  Sex: Female
  Weight: 106.58 kg

DRUGS (3)
  1. BUMETANIDE. [Concomitant]
     Active Substance: BUMETANIDE
     Indication: FLUID RETENTION
  2. LASIX [Concomitant]
     Active Substance: FUROSEMIDE
     Indication: FLUID RETENTION
  3. VENTAVIS [Suspect]
     Active Substance: ILOPROST
     Indication: PULMONARY ARTERIAL HYPERTENSION
     Dosage: 5.0 MCG, 6-9 TIMES PER DAY
     Route: 055

REACTIONS (15)
  - Death [Fatal]
  - Memory impairment [Unknown]
  - Loss of consciousness [Unknown]
  - Fatigue [Unknown]
  - Neoplasm malignant [Unknown]
  - General physical health deterioration [Unknown]
  - Diarrhoea [Unknown]
  - Concomitant disease aggravated [Unknown]
  - Abdominal pain [Unknown]
  - Neuropathy peripheral [Unknown]
  - Vaginal haemorrhage [Unknown]
  - Gastrointestinal pain [Unknown]
  - Fluid retention [Recovering/Resolving]
  - Emergency care [Unknown]
  - Somnolence [Unknown]

NARRATIVE: CASE EVENT DATE: 20190407
